FAERS Safety Report 4727644-1 (Version None)
Quarter: 2005Q3

REPORT INFORMATION
  Report Type: 
  Country: None (occurrence: None)
  Receive Date: 20050728
  Receipt Date: 20050728
  Transmission Date: 20060218
  Serious: Yes (Other)
  Sender: FDA-Public Use
  Company Number: None

PATIENT
  Age: 69 Year
  Sex: Female
  Weight: 58.9676 kg

DRUGS (2)
  1. LORAZEPAM [Suspect]
     Indication: INSOMNIA
     Dosage: .5 MG 2X WEEK
     Dates: start: 20030101, end: 20050101
  2. LORAZEPAM [Suspect]

REACTIONS (8)
  - ANGIOPATHY [None]
  - BLADDER PAIN [None]
  - ERYTHEMA [None]
  - IMPAIRED HEALING [None]
  - INFLUENZA [None]
  - OCULAR HYPERAEMIA [None]
  - PAIN IN EXTREMITY [None]
  - SKIN HAEMORRHAGE [None]
